FAERS Safety Report 23123840 (Version 1)
Quarter: 2023Q4

REPORT INFORMATION
  Report Type: Report from Study
  Country: AU (occurrence: AU)
  Receive Date: 20231030
  Receipt Date: 20231030
  Transmission Date: 20240109
  Serious: Yes (Hospitalization, Other)
  Sender: FDA-Public Use
  Company Number: AU-002147023-NVSC2023AU227472

PATIENT
  Sex: Female

DRUGS (1)
  1. COSENTYX [Suspect]
     Active Substance: SECUKINUMAB
     Indication: Psoriatic arthropathy
     Dosage: UNK
     Route: 058
     Dates: start: 20170228

REACTIONS (4)
  - Kidney infection [Unknown]
  - Sepsis [Unknown]
  - Nephrolithiasis [Unknown]
  - Urinary tract infection [Unknown]
